FAERS Safety Report 6158665-2 (Version None)
Quarter: 2009Q2

REPORT INFORMATION
  Report Type: 
  Country: None (occurrence: None)
  Receive Date: 20090415
  Receipt Date: 20090331
  Transmission Date: 20091009
  Serious: Yes (Hospitalization)
  Sender: FDA-Public Use
  Company Number: 2009S1005852

PATIENT

DRUGS (1)
  1. CARVEDILOL [Suspect]
     Indication: CARDIAC FAILURE CONGESTIVE
     Dosage: 3.125 MG;TWICE A DAY;ORAL ; 3.125 MG;TWICE A DAY;ORAL
     Route: 048

REACTIONS (3)
  - DEHYDRATION [None]
  - PULMONARY OEDEMA [None]
  - TREATMENT FAILURE [None]
